FAERS Safety Report 5474655-7 (Version None)
Quarter: 2007Q4

REPORT INFORMATION
  Report Type: 
  Country: None (occurrence: None)
  Receive Date: 20071002
  Receipt Date: 20070918
  Transmission Date: 20080405
  Serious: Yes (Other)
  Sender: FDA-Public Use
  Company Number: US-ELI_LILLY_AND_COMPANY-US200709003745

PATIENT
  Age: 48 Year
  Sex: Female

DRUGS (5)
  1. CYMBALTA [Suspect]
     Indication: DEPRESSION
     Dosage: 90 MG, DAILY (1/D)
     Dates: end: 20070815
  2. LYRICA [Concomitant]
     Dosage: 75 MG, 3/D
  3. AMBIEN [Concomitant]
     Dosage: 12.5 MG, EACH EVENING
  4. MIRTAZAPINE [Concomitant]
     Dosage: 60 MG, EACH EVENING
  5. ZANAFLEX [Concomitant]
     Dosage: 4 MG, 4/D

REACTIONS (5)
  - ALANINE AMINOTRANSFERASE INCREASED [None]
  - ASPARTATE AMINOTRANSFERASE INCREASED [None]
  - BLOOD ALKALINE PHOSPHATASE INCREASED [None]
  - FATIGUE [None]
  - MALAISE [None]
